FAERS Safety Report 19686842 (Version 2)
Quarter: 2021Q3

REPORT INFORMATION
  Report Type: Spontaneous
  Country: ES (occurrence: ES)
  Receive Date: 20210811
  Receipt Date: 20210921
  Transmission Date: 20211014
  Serious: Yes (Other)
  Sender: FDA-Public Use
  Company Number: ES-MYLANLABS-2021M1048982

PATIENT
  Age: 31 Year
  Sex: Female
  Weight: 67 kg

DRUGS (4)
  1. VENLAFAXINE [Suspect]
     Active Substance: VENLAFAXINE HYDROCHLORIDE
     Indication: DEPRESSION
     Dosage: 75 MILLIGRAM, QD
     Route: 048
     Dates: start: 202011
  2. RIVOTRIL [Suspect]
     Active Substance: CLONAZEPAM
     Indication: ANXIETY
     Dosage: 2 MILLIGRAM, QD
     Route: 048
     Dates: start: 202011, end: 202011
  3. COMIRNATY [Suspect]
     Active Substance: TOZINAMERAN
     Indication: COVID-19 IMMUNISATION
     Dosage: 1 DOSAGE FORM, TOTAL
     Route: 030
     Dates: start: 20210204, end: 20210204
  4. COMIRNATY [Suspect]
     Active Substance: TOZINAMERAN
     Dosage: 1 DOSAGE FORM, TOTAL
     Route: 030
     Dates: start: 20210114, end: 20210114

REACTIONS (7)
  - Arthralgia [Recovering/Resolving]
  - Fatigue [Recovering/Resolving]
  - Pain [Recovering/Resolving]
  - Haematoma [Recovering/Resolving]
  - Feeling cold [Recovering/Resolving]
  - Headache [Recovering/Resolving]
  - Myalgia [Recovering/Resolving]

NARRATIVE: CASE EVENT DATE: 20210205
